FAERS Safety Report 6404531-4 (Version None)
Quarter: 2009Q4

REPORT INFORMATION
  Report Type: 
  Country: None (occurrence: None)
  Receive Date: 20091016
  Receipt Date: 20091006
  Transmission Date: 20100525
  Serious: Yes (Hospitalization)
  Sender: FDA-Public Use
  Company Number: PHHO2009BE12267

PATIENT
  Sex: Male

DRUGS (1)
  1. RAD 666 RAD+TAB [Suspect]
     Indication: METASTATIC RENAL CELL CARCINOMA
     Dosage: 10 MG
     Route: 048
     Dates: start: 20090617, end: 20091003

REACTIONS (4)
  - GLOSSITIS [None]
  - GLOSSODYNIA [None]
  - STRIDOR [None]
  - SWOLLEN TONGUE [None]
